FAERS Safety Report 13890122 (Version 1)
Quarter: 2017Q3

REPORT INFORMATION
  Report Type: Spontaneous
  Country: US (occurrence: US)
  Receive Date: 20170816
  Receipt Date: 20170816
  Transmission Date: 20171127
  Serious: Yes (Other)
  Sender: FDA-Public Use
  Company Number: None

PATIENT
  Age: 58 Year
  Sex: Female
  Weight: 108 kg

DRUGS (1)
  1. REGRANEX [Suspect]
     Active Substance: BECAPLERMIN
     Indication: WOUND
     Dosage: ?          OTHER FREQUENCY:ON 12 HOURS, OFF Q;?
     Route: 061
     Dates: start: 20170721, end: 20170722

REACTIONS (1)
  - Application site swelling [None]

NARRATIVE: CASE EVENT DATE: 20170721
